FAERS Safety Report 5826201-3 (Version None)
Quarter: 2008Q3

REPORT INFORMATION
  Report Type: 
  Country: None (occurrence: None)
  Receive Date: 20080723
  Receipt Date: 20080725
  Transmission Date: 20090109
  Serious: Yes (Life-Threatening)
  Sender: FDA-Public Use
  Company Number: 200507AGG00290

PATIENT
  Age: 72 Year
  Sex: Male

DRUGS (3)
  1. TIROFIBAN HYDROCHLORIDE (TIROFIBAN HCL) [Suspect]
     Dosage: (12.5 MG/ML INTRAVENOUS (NOT OTHERWISE SPECIFIED))
     Dates: start: 20050701, end: 20050701
  2. ASPIRIN [Concomitant]
  3. CLOPIDOGREL BISULFATE [Concomitant]

REACTIONS (1)
  - PLATELET COUNT DECREASED [None]
